FAERS Safety Report 13847846 (Version 1)
Quarter: 2017Q3

REPORT INFORMATION
  Report Type: Spontaneous
  Country: US (occurrence: US)
  Receive Date: 20170809
  Receipt Date: 20170809
  Transmission Date: 20171127
  Serious: No
  Sender: FDA-Public Use
  Company Number: US-PURDUE-USA-2017-0136312

PATIENT
  Sex: Female
  Weight: 82.54 kg

DRUGS (3)
  1. BUTRANS [Suspect]
     Active Substance: BUPRENORPHINE
     Indication: FIBROMYALGIA
     Dosage: 7.5 MCG/HR, WEEKLY
     Route: 062
     Dates: start: 201612
  2. BUTRANS [Suspect]
     Active Substance: BUPRENORPHINE
     Dosage: 7.5 MCG/HR, WEEKLY
     Route: 062
     Dates: start: 20150430
  3. BUTRANS [Suspect]
     Active Substance: BUPRENORPHINE
     Dosage: 5 MCG/HR, WEEKLY
     Route: 062
     Dates: start: 2014

REACTIONS (5)
  - Application site erythema [Not Recovered/Not Resolved]
  - Application site swelling [Unknown]
  - Rash generalised [Recovered/Resolved]
  - Allergy to metals [Recovered/Resolved]
  - Application site pruritus [Not Recovered/Not Resolved]

NARRATIVE: CASE EVENT DATE: 2014
